FAERS Safety Report 24372081 (Version 1)
Quarter: 2024Q3

REPORT INFORMATION
  Report Type: Spontaneous
  Country: US (occurrence: US)
  Receive Date: 20240927
  Receipt Date: 20240927
  Transmission Date: 20241017
  Serious: Yes (Other)
  Sender: PFIZER
  Company Number: US-PFIZER INC-202400257539

PATIENT
  Age: 62 Year
  Sex: Female

DRUGS (3)
  1. XELJANZ XR [Suspect]
     Active Substance: TOFACITINIB CITRATE
     Indication: Arthritis
     Dosage: 11 MG, DAILY
     Dates: end: 2024
  2. XELJANZ XR [Suspect]
     Active Substance: TOFACITINIB CITRATE
     Dosage: 11 MG, 2X/WEEK
     Route: 048
     Dates: start: 20240612
  3. METHOTREXATE SODIUM [Concomitant]
     Active Substance: METHOTREXATE SODIUM
     Indication: Arthritis
     Dosage: 1 (ONE) ML WEEKLY, 4 MILLILITER

REACTIONS (4)
  - Postmenopausal haemorrhage [Unknown]
  - Dry mouth [Unknown]
  - Parotid gland enlargement [Unknown]
  - Off label use [Unknown]

NARRATIVE: CASE EVENT DATE: 20240101
